FAERS Safety Report 8853258 (Version 2)
Quarter: 2012Q4

REPORT INFORMATION
  Report Type: 
  Country: DE (occurrence: DE)
  Receive Date: 20121022
  Receipt Date: 20121029
  Transmission Date: 20130627
  Serious: Yes (Other)
  Sender: FDA-Public Use
  Company Number: DE-PFIZER INC-2012257338

PATIENT
  Age: 75 Year
  Sex: Male

DRUGS (4)
  1. INSPRA [Suspect]
     Dosage: 50 mg, UNK
  2. INSPRA [Suspect]
     Dosage: 25 mg, UNK
  3. CARVEDILOL [Concomitant]
     Dosage: 25 mg, UNK
  4. OLMETEC PLUS [Concomitant]
     Dosage: 40 mg/ 25 mg

REACTIONS (1)
  - Skin ulcer [Unknown]
